FAERS Safety Report 15957907 (Version 1)
Quarter: 2019Q1

REPORT INFORMATION
  Report Type: Spontaneous
  Country: US (occurrence: US)
  Receive Date: 20190213
  Receipt Date: 20190213
  Transmission Date: 20190417
  Serious: Yes (Other)
  Sender: FDA-Public Use
  Company Number: US-SA-2018SA337626

PATIENT
  Age: 12 Year
  Sex: Female

DRUGS (1)
  1. TRIAMCINOLONE ACETONIDE. [Suspect]
     Active Substance: TRIAMCINOLONE ACETONIDE
     Indication: JUVENILE IDIOPATHIC ARTHRITIS
     Dosage: 30 MG, UNK
     Route: 014

REACTIONS (4)
  - Skin atrophy [Unknown]
  - Lipoatrophy [Unknown]
  - Skin plaque [Recovered/Resolved]
  - Injection site discolouration [Unknown]
